FAERS Safety Report 5645252-5 (Version None)
Quarter: 2008Q1

REPORT INFORMATION
  Report Type: 
  Country: None (occurrence: None)
  Receive Date: 20080229
  Receipt Date: 20080225
  Transmission Date: 20080703
  Serious: Yes (Other)
  Sender: FDA-Public Use
  Company Number: AU-ASTRAZENECA-2008AP01426

PATIENT
  Age: 32 Year
  Sex: Female
  Weight: 68 kg

DRUGS (4)
  1. ROPIVACAINE HYDROCHLORIDE [Suspect]
     Indication: INDUCTION OF ANAESTHESIA
  2. PETHIDINE [Suspect]
     Indication: EPIDURAL ANAESTHESIA
     Route: 037
  3. EPHEDRINE SUL CAP [Suspect]
  4. MIDAZOLAM HCL [Suspect]

REACTIONS (2)
  - BLOOD PRESSURE DECREASED [None]
  - UNRESPONSIVE TO STIMULI [None]
